FAERS Safety Report 9342057 (Version 1)
Quarter: 2013Q2

REPORT INFORMATION
  Report Type: Report from Study
  Country: DE (occurrence: DE)
  Receive Date: 20130611
  Receipt Date: 20130611
  Transmission Date: 20140414
  Serious: Yes (Hospitalization)
  Sender: FDA-Public Use
  Company Number: PHHY2013DE058242

PATIENT
  Sex: Male

DRUGS (4)
  1. FTY 720 [Suspect]
     Indication: MULTIPLE SCLEROSIS
     Dosage: 0.5 MG, QD
     Route: 048
     Dates: start: 20111005, end: 20120916
  2. FTY 720 [Suspect]
     Dosage: 0.5 MG, QD
     Route: 048
     Dates: start: 20130102
  3. BACLOFEN [Concomitant]
     Indication: MUSCLE SPASTICITY
     Dosage: 25 MG, PRN
     Route: 048
     Dates: start: 20110930
  4. LORAZEPAM [Concomitant]
     Indication: PAIN
     Dosage: 1 MG, PRN
     Route: 048
     Dates: start: 20111031

REACTIONS (1)
  - Uhthoff^s phenomenon [Recovered/Resolved]
